FAERS Safety Report 18941726 (Version 1)
Quarter: 2021Q1

REPORT INFORMATION
  Report Type: Spontaneous
  Country: FI (occurrence: FI)
  Receive Date: 20210225
  Receipt Date: 20210225
  Transmission Date: 20210420
  Serious: Yes (Hospitalization)
  Sender: FDA-Public Use
  Company Number: FI-TEVA-2021-FI-1882712

PATIENT
  Age: 2 Year
  Sex: Male

DRUGS (1)
  1. LAMOTRIGINE. [Suspect]
     Active Substance: LAMOTRIGINE
     Dates: start: 20201113

REACTIONS (17)
  - Accidental exposure to product by child [Recovering/Resolving]
  - Vomiting [Recovering/Resolving]
  - Product physical issue [Recovering/Resolving]
  - Aspiration [Recovering/Resolving]
  - Toxicity to various agents [Recovering/Resolving]
  - Depressed level of consciousness [Recovering/Resolving]
  - Product blister packaging issue [Recovering/Resolving]
  - Belligerence [Recovering/Resolving]
  - Aspartate aminotransferase abnormal [Recovering/Resolving]
  - C-reactive protein increased [Recovering/Resolving]
  - Accidental overdose [Recovering/Resolving]
  - Seizure [Recovering/Resolving]
  - Body temperature decreased [Recovering/Resolving]
  - Pyrexia [Recovering/Resolving]
  - Confusional state [Recovering/Resolving]
  - Lung infiltration [Recovering/Resolving]
  - Acidosis [Recovering/Resolving]

NARRATIVE: CASE EVENT DATE: 20201113
